FAERS Safety Report 11353948 (Version 1)
Quarter: 2015Q3

REPORT INFORMATION
  Report Type: Spontaneous
  Country: US (occurrence: US)
  Receive Date: 20150807
  Receipt Date: 20150807
  Transmission Date: 20151125
  Serious: No
  Sender: FDA-Public Use
  Company Number: US-JNJFOC-20150413017

PATIENT
  Age: 79 Year
  Sex: Female
  Weight: 65.77 kg

DRUGS (9)
  1. REFRESH [Concomitant]
     Active Substance: UNSPECIFIED INGREDIENT
     Indication: DRY EYE
     Dosage: 1 TO 3 TIMES PER DAY (IN THE LEFT EYE). INTERVAL: 1 AND HALF YEARS
     Route: 065
  2. VITAMIN C [Concomitant]
     Active Substance: ASCORBIC ACID
     Indication: NUTRITIONAL SUPPLEMENTATION
     Dosage: 1 PER DAY. INTERVAL: 10 YEARS
     Route: 065
  3. EYE DROP MEDICATIONS [Concomitant]
     Indication: OEDEMA
     Dosage: 1 TO 3 TIMES PER DAY ON THE RIGHT EYE. INTERVAL: 1 AND HALF YEARS
     Route: 065
  4. LOVASTATIN. [Concomitant]
     Active Substance: LOVASTATIN
     Indication: BLOOD CHOLESTEROL INCREASED
     Dosage: 1 PER DAY. INTERVAL: 5 YEARS
     Route: 065
  5. SUDAFED 12 HOUR [Suspect]
     Active Substance: PSEUDOEPHEDRINE HYDROCHLORIDE
     Route: 048
  6. SUDAFED 12 HOUR [Suspect]
     Active Substance: PSEUDOEPHEDRINE HYDROCHLORIDE
     Indication: SEASONAL ALLERGY
     Dosage: 1 CAPLET, INTERVAL: VARIED
     Route: 048
  7. CALCIUM [Concomitant]
     Active Substance: CALCIUM
     Indication: NUTRITIONAL SUPPLEMENTATION
     Dosage: 1 PER DAY. INTERVAL: 10 YEARS
     Route: 065
  8. AZITHROMYCIN [Concomitant]
     Active Substance: AZITHROMYCIN ANHYDROUS
     Indication: PRODUCT USED FOR UNKNOWN INDICATION
     Dosage: 1 PER DAY FOR 7 DAYS EVERY OTHER MONTH
     Route: 065
  9. MULTIVITAMINS [Concomitant]
     Active Substance: VITAMINS
     Indication: NUTRITIONAL SUPPLEMENTATION
     Dosage: 1 PER DAY. INTERVAL: 10 YEARS
     Route: 065

REACTIONS (5)
  - Physical product label issue [Unknown]
  - Dry eye [Recovered/Resolved]
  - Anxiety [Unknown]
  - Reaction to drug excipients [Unknown]
  - Eye pruritus [Recovered/Resolved]
